FAERS Safety Report 25953640 (Version 1)
Quarter: 2025Q4

REPORT INFORMATION
  Report Type: Spontaneous
  Country: US (occurrence: US)
  Receive Date: 20251023
  Receipt Date: 20251023
  Transmission Date: 20260117
  Serious: No
  Sender: MYLAN
  Company Number: US-MYLANLABS-2025M1085968

PATIENT
  Age: 65 Year
  Sex: Male
  Weight: 90.72 kg

DRUGS (4)
  1. WIXELA INHUB [Suspect]
     Active Substance: FLUTICASONE PROPIONATE\SALMETEROL XINAFOATE
     Indication: Asthma
     Dosage: 100/50 MICROGRAM, BID (TWICE A DAY)
     Dates: start: 20251006
  2. WIXELA INHUB [Suspect]
     Active Substance: FLUTICASONE PROPIONATE\SALMETEROL XINAFOATE
     Dosage: 100/50 MICROGRAM, BID (TWICE A DAY)
     Route: 065
     Dates: start: 20251006
  3. WIXELA INHUB [Suspect]
     Active Substance: FLUTICASONE PROPIONATE\SALMETEROL XINAFOATE
     Dosage: 100/50 MICROGRAM, BID (TWICE A DAY)
     Route: 065
     Dates: start: 20251006
  4. WIXELA INHUB [Suspect]
     Active Substance: FLUTICASONE PROPIONATE\SALMETEROL XINAFOATE
     Dosage: 100/50 MICROGRAM, BID (TWICE A DAY)
     Dates: start: 20251006

REACTIONS (3)
  - Wrong device used [Unknown]
  - Device use error [Unknown]
  - Device mechanical issue [Unknown]

NARRATIVE: CASE EVENT DATE: 20251001
